FAERS Safety Report 13001425 (Version 3)
Quarter: 2017Q2

REPORT INFORMATION
  Report Type: Spontaneous
  Country: JP (occurrence: JP)
  Receive Date: 20161206
  Receipt Date: 20170417
  Transmission Date: 20170830
  Serious: Yes (Death, Hospitalization, Other)
  Sender: FDA-Public Use
  Company Number: PHJP2016JP035293

PATIENT
  Age: 42 Year
  Sex: Female

DRUGS (12)
  1. MELOXICAM. [Concomitant]
     Active Substance: MELOXICAM
     Indication: SARCOMA UTERUS
     Dosage: 10 MG, QD
     Route: 048
     Dates: start: 20160408, end: 20160811
  2. VOTRIENT [Suspect]
     Active Substance: PAZOPANIB HYDROCHLORIDE
     Dosage: 400MG AND 600MG, QOD
     Route: 048
     Dates: start: 20160510, end: 20160629
  3. FEXOFENADINE [Concomitant]
     Active Substance: FEXOFENADINE\FEXOFENADINE HYDROCHLORIDE
     Indication: BLEPHARITIS
     Dosage: 60 MG, BID
     Route: 048
     Dates: start: 20160119, end: 20160811
  4. VOTRIENT [Suspect]
     Active Substance: PAZOPANIB HYDROCHLORIDE
     Indication: UTERINE LEIOMYOSARCOMA
     Dosage: 400 MG, QD
     Route: 048
     Dates: start: 20151005
  5. PROTECADIN [Concomitant]
     Active Substance: LAFUTIDINE
     Indication: GASTROOESOPHAGEAL REFLUX DISEASE
     Dosage: 10 MG, QD
     Route: 048
     Dates: start: 20151106, end: 20160811
  6. JUZENTAIHOTO [Concomitant]
     Indication: DECREASED APPETITE
     Dosage: 2.5 MG, TID
     Route: 048
     Dates: start: 20151106, end: 20160811
  7. MIYA-BM [Concomitant]
     Active Substance: CLOSTRIDIUM BUTYRICUM SPORES STRAIN M-55
     Indication: DYSBACTERIOSIS
     Dosage: 1 G, TID
     Route: 048
     Dates: start: 20160422, end: 20160811
  8. GLYCYRON [Concomitant]
     Active Substance: AMMONIUM GLYCYRRHIZATE\GLYCINE\METHIONINE
     Indication: LIVER DISORDER
     Route: 048
     Dates: start: 20160119, end: 20160811
  9. OXYCONTIN [Concomitant]
     Active Substance: OXYCODONE HYDROCHLORIDE
     Indication: CANCER PAIN
     Dosage: 10 MG, UNK
     Route: 048
     Dates: start: 20160408, end: 20160811
  10. BESACOLIN [Concomitant]
     Active Substance: BETHANECHOL CHLORIDE
     Indication: ILEUS PARALYTIC
     Dosage: 15 MG, TID
     Route: 048
     Dates: start: 20151106, end: 20160811
  11. VOTRIENT [Suspect]
     Active Substance: PAZOPANIB HYDROCHLORIDE
     Dosage: 600 MG, QD
     Route: 048
     Dates: start: 20160630, end: 20161021
  12. URSODEOXYCHOLIC ACID [Concomitant]
     Active Substance: URSODIOL
     Indication: LIVER DISORDER
     Dosage: 100 MG, TID
     Route: 048
     Dates: start: 20160119, end: 20160811

REACTIONS (14)
  - Trousseau^s syndrome [Unknown]
  - Malignant neoplasm progression [Fatal]
  - Ventricular hypokinesia [Recovered/Resolved]
  - Splenic infarction [Not Recovered/Not Resolved]
  - Pelvic neoplasm [Unknown]
  - Uterine leiomyosarcoma [Fatal]
  - Haemorrhagic diathesis [Recovered/Resolved]
  - Renal infarct [Not Recovered/Not Resolved]
  - Urinary tract infection [Unknown]
  - Stress cardiomyopathy [Recovered/Resolved]
  - Platelet count decreased [Recovered/Resolved]
  - Abdominal pain upper [Recovering/Resolving]
  - Rectal perforation [Unknown]
  - Haematochezia [Recovered/Resolved]

NARRATIVE: CASE EVENT DATE: 201605
